FAERS Safety Report 16297101 (Version 1)
Quarter: 2019Q2

REPORT INFORMATION
  Report Type: Spontaneous
  Country: US (occurrence: US)
  Receive Date: 20190509
  Receipt Date: 20190509
  Transmission Date: 20190711
  Serious: Yes (Disabling)
  Sender: FDA-Public Use
  Company Number: None

PATIENT
  Age: 31 Year
  Sex: Female
  Weight: 58.5 kg

DRUGS (12)
  1. ADDERALL (AS NEEDED) [Concomitant]
  2. PRILOSEC [Concomitant]
     Active Substance: OMEPRAZOLE MAGNESIUM
  3. AMITIZA [Concomitant]
     Active Substance: LUBIPROSTONE
  4. CARAFATE AS NEEDED [Concomitant]
  5. HYDROXYZINE AS NEEDED [Concomitant]
  6. NEURONTIN [Concomitant]
     Active Substance: GABAPENTIN
  7. CLONIDINE HCL 0.1MG [Suspect]
     Active Substance: CLONIDINE HYDROCHLORIDE
     Indication: ANXIETY
     Dosage: ?          QUANTITY:1 TABLET(S);?
     Route: 048
  8. XANAX XR [Concomitant]
     Active Substance: ALPRAZOLAM
  9. LUNESTA [Concomitant]
     Active Substance: ESZOPICLONE
  10. ONDANSETRON HCL AS NEEDED [Concomitant]
  11. PROZAC [Concomitant]
     Active Substance: FLUOXETINE HYDROCHLORIDE
  12. CLONIDINE. [Concomitant]
     Active Substance: CLONIDINE

REACTIONS (3)
  - Blindness transient [None]
  - Loss of consciousness [None]
  - Dizziness [None]

NARRATIVE: CASE EVENT DATE: 20181201
